FAERS Safety Report 19801704 (Version 1)
Quarter: 2021Q3

REPORT INFORMATION
  Report Type: Spontaneous
  Country: US (occurrence: US)
  Receive Date: 20210908
  Receipt Date: 20210908
  Transmission Date: 20211014
  Serious: No
  Sender: FDA-Public Use
  Company Number: US-SA-2021SA291943

PATIENT
  Age: 32 Year
  Sex: Male

DRUGS (1)
  1. LEMTRADA [Suspect]
     Active Substance: ALEMTUZUMAB
     Indication: MULTIPLE SCLEROSIS
     Dosage: DRUG STRUCTURE DOSAGE : 12 MG DRUG INTERVAL DOSAGE : FOR 5 DAYS

REACTIONS (3)
  - Rash [Unknown]
  - Pruritus [Unknown]
  - Discomfort [Unknown]
